FAERS Safety Report 10042817 (Version 1)
Quarter: 2014Q1

REPORT INFORMATION
  Report Type: Spontaneous
  Country: US (occurrence: US)
  Receive Date: 20140327
  Receipt Date: 20140327
  Transmission Date: 20141002
  Serious: No
  Sender: FDA-Public Use
  Company Number: US-GALDERMA-US13004125

PATIENT
  Age: 79 Year
  Sex: Female

DRUGS (3)
  1. DOXYCYCLINE (DOXYCYCLINE) [Suspect]
     Indication: ROSACEA
     Route: 048
     Dates: start: 2012, end: 201302
  2. AVEENO SOAP [Concomitant]
     Indication: THERAPEUTIC SKIN CARE TOPICAL
     Route: 061
  3. AVEENO MOISTURIZER [Concomitant]
     Indication: DRY SKIN PROPHYLAXIS
     Route: 061

REACTIONS (1)
  - Abdominal discomfort [Recovered/Resolved]
